FAERS Safety Report 22661970 (Version 1)
Quarter: 2023Q2

REPORT INFORMATION
  Report Type: Spontaneous
  Country: CN (occurrence: CN)
  Receive Date: 20230630
  Receipt Date: 20230630
  Transmission Date: 20230722
  Serious: Yes (Other)
  Sender: FDA-Public Use
  Company Number: CN-009507513-2306CHN011462

PATIENT
  Age: 42 Year
  Sex: Male
  Weight: 75 kg

DRUGS (2)
  1. CILASTATIN SODIUM\IMIPENEM [Suspect]
     Active Substance: CILASTATIN SODIUM\IMIPENEM
     Indication: Abdominal infection
     Dosage: 0.5 G, Q8H
     Route: 041
     Dates: start: 20230605, end: 20230607
  2. SODIUM CHLORIDE [Concomitant]
     Active Substance: SODIUM CHLORIDE
     Indication: Medication dilution
     Dosage: 100 ML, Q8H
     Route: 041
     Dates: start: 20230605, end: 20230607

REACTIONS (2)
  - Depressed level of consciousness [Unknown]
  - Disorganised speech [Recovered/Resolved]

NARRATIVE: CASE EVENT DATE: 20230607
